FAERS Safety Report 24187210 (Version 2)
Quarter: 2025Q3

REPORT INFORMATION
  Report Type: Report from Study
  Country: JP (occurrence: JP)
  Receive Date: 20240808
  Receipt Date: 20250811
  Transmission Date: 20251020
  Serious: Yes (Death, Other)
  Sender: ROCHE
  Company Number: JP-CHUGAI-2024026438

PATIENT
  Age: 62 Year
  Sex: Female

DRUGS (13)
  1. PIASKY [Suspect]
     Active Substance: CROVALIMAB-AKKZ
     Indication: Paroxysmal nocturnal haemoglobinuria
     Route: 058
     Dates: start: 20240702, end: 20240702
  2. QUETIAPINE [Concomitant]
     Active Substance: QUETIAPINE
     Dates: start: 20240728
  3. BROTIZOLAM [Concomitant]
     Active Substance: BROTIZOLAM
     Dates: start: 20240728
  4. ETHYL LOFLAZEPATE [Concomitant]
     Active Substance: ETHYL LOFLAZEPATE
     Dates: start: 20240728
  5. VALPROATE SODIUM [Concomitant]
     Active Substance: VALPROATE SODIUM
     Dates: start: 20240728
  6. MIRABEGRON [Concomitant]
     Active Substance: MIRABEGRON
     Dates: start: 20240728
  7. CLARITIN [Concomitant]
     Active Substance: LORATADINE
     Dates: start: 20240728
  8. MAGNESIUM OXIDE [Concomitant]
     Active Substance: MAGNESIUM OXIDE
     Dates: start: 20240728
  9. BIO-THREE [Concomitant]
     Active Substance: HERBALS
     Dates: start: 20240728
  10. AMBROXOL HYDROCHLORIDE [Concomitant]
     Active Substance: AMBROXOL HYDROCHLORIDE
     Dates: start: 20240728
  11. BERIZYM [CELLULASE;DIASTASE;LIPASE;PANCREATIN] [Concomitant]
     Dates: start: 20240728
  12. REBAMIPIDE [Concomitant]
     Active Substance: REBAMIPIDE
     Dates: start: 20240728
  13. METHYLCOBALAMIN [Concomitant]
     Active Substance: METHYLCOBALAMIN
     Dates: start: 20240728

REACTIONS (4)
  - Subdural haematoma [Fatal]
  - Brain herniation [Fatal]
  - Fall [Unknown]
  - Shock [Fatal]

NARRATIVE: CASE EVENT DATE: 20240728
